FAERS Safety Report 9912716 (Version 1)
Quarter: 2014Q1

REPORT INFORMATION
  Report Type: Spontaneous
  Country: US (occurrence: None)
  Receive Date: 20140218
  Receipt Date: 20140218
  Transmission Date: 20141002
  Serious: Yes (Life-Threatening, Hospitalization, Other)
  Sender: FDA-Public Use
  Company Number: None

PATIENT
  Age: 56 Year
  Sex: Female
  Weight: 77.11 kg

DRUGS (1)
  1. NITROGLYCERIN [Suspect]
     Indication: DRUG THERAPY
     Dates: start: 20140211

REACTIONS (2)
  - Cardiac arrest [None]
  - Drug hypersensitivity [None]
